FAERS Safety Report 9208006 (Version 1)
Quarter: 2013Q2

REPORT INFORMATION
  Report Type: Report from Study
  Country: KR (occurrence: KR)
  Receive Date: 20130403
  Receipt Date: 20130403
  Transmission Date: 20140414
  Serious: Yes (Other)
  Sender: FDA-Public Use
  Company Number: KR-NAPPMUNDI-GBR-2013-0013613

PATIENT
  Sex: Female

DRUGS (3)
  1. OXYCODONE [Suspect]
     Indication: CANCER PAIN
     Dosage: UNK
     Route: 048
     Dates: start: 20110912
  2. MAGNESIUM OXIDE [Concomitant]
     Dosage: UNK
     Dates: start: 20110910
  3. CODEINE [Concomitant]
     Dosage: UNK
     Dates: start: 20110812

REACTIONS (5)
  - Delirium [Unknown]
  - Dry mouth [Unknown]
  - Hyperhidrosis [Unknown]
  - Constipation [Unknown]
  - Dizziness [Unknown]
